FAERS Safety Report 7496300-1 (Version None)
Quarter: 2011Q2

REPORT INFORMATION
  Report Type: 
  Country: None (occurrence: None)
  Receive Date: 20110523
  Receipt Date: 20110516
  Transmission Date: 20111010
  Serious: Yes (Other)
  Sender: FDA-Public Use
  Company Number: US-PFIZER INC-2011106030

PATIENT
  Sex: Female
  Weight: 62.585 kg

DRUGS (2)
  1. ATENOLOL [Concomitant]
     Indication: HYPERTENSION
     Dosage: 50 MG, 2X/DAY
     Route: 048
  2. AROMASIN [Suspect]
     Indication: BREAST CANCER
     Dosage: 1X/DAY
     Route: 048
     Dates: start: 20110301, end: 20110501

REACTIONS (4)
  - MUSCLE SPASMS [None]
  - MUSCULOSKELETAL PAIN [None]
  - DYSURIA [None]
  - BACK PAIN [None]
